FAERS Safety Report 15234979 (Version 1)
Quarter: 2018Q4

REPORT INFORMATION
  Report Type: Report from Study
  Country: ES (occurrence: ES)
  Receive Date: 20180803
  Receipt Date: 20180803
  Transmission Date: 20190204
  Serious: Yes (Hospitalization)
  Sender: FDA-Public Use
  Company Number: ES-TEVA-2018-ES-934304

PATIENT
  Age: 73 Year
  Sex: Male

DRUGS (7)
  1. ZEBETA [Suspect]
     Active Substance: BISOPROLOL FUMARATE
     Dosage: 2,5 MG DIA
     Route: 048
     Dates: start: 20171118
  2. FUROSEMIDA (1615A) [Concomitant]
     Active Substance: FUROSEMIDE
     Dosage: 60MG CADA 8H
     Route: 042
     Dates: start: 20171121, end: 20171123
  3. NOREPINEFRINA (331A) [Concomitant]
     Dosage: 40 MG PC
     Route: 042
     Dates: start: 20171119, end: 20171122
  4. ALOPURINOL (318A) [Concomitant]
     Active Substance: ALLOPURINOL
     Dosage: 100 MG DIA
     Route: 048
     Dates: start: 20171118
  5. CLOPIDOGREL [Concomitant]
     Active Substance: CLOPIDOGREL BISULFATE
     Dosage: 75 MG DIA
     Route: 048
     Dates: start: 20171118
  6. INSULINA LISPRO (7320A) [Interacting]
     Active Substance: INSULIN LISPRO
     Indication: TYPE 2 DIABETES MELLITUS
     Dosage: 1-1-1
     Route: 058
     Dates: start: 20171118, end: 20171122
  7. MAGNESIO SULFATO HEPTAHIDRATO (22VU) [Concomitant]
     Dosage: 12,2 MEQ A LAS 9H
     Route: 042
     Dates: start: 20171118, end: 20171121

REACTIONS (2)
  - Hypoglycaemia [Recovered/Resolved]
  - Drug interaction [Unknown]

NARRATIVE: CASE EVENT DATE: 20171122
